FAERS Safety Report 6640592-5 (Version None)
Quarter: 2010Q1

REPORT INFORMATION
  Report Type: 
  Country: None (occurrence: None)
  Receive Date: 20100318
  Receipt Date: 20100309
  Transmission Date: 20100710
  Serious: Yes (Other)
  Sender: FDA-Public Use
  Company Number: US-ASTRAZENECA-2009UW01953

PATIENT
  Age: 72 Year
  Sex: Female
  Weight: 75.3 kg

DRUGS (4)
  1. ARIMIDEX [Suspect]
     Indication: BREAST CANCER
     Route: 048
     Dates: start: 20070901, end: 20100107
  2. DICLOFENAC [Concomitant]
     Indication: ARTHRITIS
  3. NADOLOL [Concomitant]
     Indication: HYPERTENSION
  4. BENICAR [Concomitant]
     Indication: BLOOD PRESSURE

REACTIONS (9)
  - ARTHRITIS [None]
  - DIZZINESS [None]
  - GENERAL PHYSICAL HEALTH DETERIORATION [None]
  - HOT FLUSH [None]
  - HYPERTENSION [None]
  - IMPAIRED DRIVING ABILITY [None]
  - OCULAR VASCULAR DISORDER [None]
  - PHOTOPSIA [None]
  - RETINAL DISORDER [None]
